FAERS Safety Report 24082618 (Version 1)
Quarter: 2024Q3

REPORT INFORMATION
  Report Type: Spontaneous
  Country: US (occurrence: US)
  Receive Date: 20240712
  Receipt Date: 20240712
  Transmission Date: 20241017
  Serious: Yes (Hospitalization)
  Sender: Granulation Technology, INC
  Company Number: US-GTI-000253

PATIENT
  Age: 48 Year
  Sex: Male

DRUGS (3)
  1. TACROLIMUS [Suspect]
     Active Substance: TACROLIMUS
     Indication: Immunosuppression
     Route: 065
  2. EVEROLIMUS [Suspect]
     Active Substance: EVEROLIMUS
     Indication: Immunosuppression
     Route: 065
  3. PREDNISONE [Suspect]
     Active Substance: PREDNISONE
     Indication: Immunosuppression
     Route: 065

REACTIONS (5)
  - Histoplasmosis disseminated [Unknown]
  - Meningitis histoplasma [Recovering/Resolving]
  - Disease progression [Recovering/Resolving]
  - Pollakiuria [Unknown]
  - Hyponatraemia [Unknown]
